FAERS Safety Report 4330202-4 (Version None)
Quarter: 2004Q1

REPORT INFORMATION
  Report Type: 
  Country: None (occurrence: None)
  Receive Date: 20040329
  Receipt Date: 20040315
  Transmission Date: 20041129
  Serious: Yes (Hospitalization)
  Sender: FDA-Public Use
  Company Number: 04P-013-0253637-00

PATIENT
  Age: 53 Year
  Sex: Female
  Weight: 108 kg

DRUGS (3)
  1. TRICOR [Suspect]
     Indication: DYSLIPIDAEMIA
     Dosage: 267 MG, 1 IN 1 D, ORAL
     Route: 048
     Dates: start: 20030715
  2. ATENOLOL [Concomitant]
  3. EPROSARTAN [Concomitant]

REACTIONS (1)
  - CEREBROVASCULAR ACCIDENT [None]
